FAERS Safety Report 5393374-9 (Version None)
Quarter: 2007Q3

REPORT INFORMATION
  Report Type: 
  Country: None (occurrence: None)
  Receive Date: 20070723
  Receipt Date: 20070718
  Transmission Date: 20080115
  Serious: Yes (Death, Life-Threatening, Hospitalization)
  Sender: FDA-Public Use
  Company Number: PHBS2007JP09487

PATIENT
  Age: 87 Year
  Sex: Female
  Weight: 35 kg

DRUGS (9)
  1. NORVASC [Suspect]
     Indication: HYPERTENSION
     Dosage: 2.5 MG/DAY
     Route: 048
     Dates: start: 19990501, end: 20070525
  2. AMARYL [Suspect]
     Indication: DIABETES MELLITUS
     Dosage: 1 MG/DAY
     Route: 048
     Dates: start: 20070401, end: 20070517
  3. ASPIRIN [Suspect]
     Indication: ANGINA PECTORIS
     Dosage: 100 MG/DAY
     Route: 048
     Dates: start: 20070401, end: 20070526
  4. DIOVAN [Suspect]
     Indication: HYPERTENSION
     Dosage: 40 MG/DAY
     Route: 048
     Dates: start: 20060614, end: 20070523
  5. ROXATIDINE ACETATE HCL [Concomitant]
     Indication: GASTROOESOPHAGEAL REFLUX DISEASE
     Dosage: 75 MG/DAY
     Route: 048
     Dates: start: 20001101, end: 20070614
  6. NATEGLINIDE [Concomitant]
     Indication: DIABETES MELLITUS
     Dosage: 180 MG/DAY
     Route: 048
     Dates: start: 20011101, end: 20070401
  7. TRIAZOLAM [Concomitant]
     Indication: INSOMNIA
     Dosage: 0.125 MG/DAY
     Route: 048
     Dates: start: 19991201, end: 20070530
  8. LISINOPRIL [Concomitant]
     Indication: HYPERTENSION
     Dosage: 10 MG/DAY
     Route: 048
     Dates: start: 19990501
  9. LISINOPRIL [Concomitant]
     Dosage: 5 MG/DAY
     Route: 048
     Dates: end: 20060601

REACTIONS (21)
  - ALANINE AMINOTRANSFERASE INCREASED [None]
  - ANOREXIA [None]
  - ASPARTATE AMINOTRANSFERASE INCREASED [None]
  - BLOOD BILIRUBIN INCREASED [None]
  - BLOOD LACTATE DEHYDROGENASE INCREASED [None]
  - CHOLECYSTITIS [None]
  - CHOLELITHIASIS [None]
  - CHOLESTASIS [None]
  - COAGULOPATHY [None]
  - COMA [None]
  - GALLBLADDER DISORDER [None]
  - GALLBLADDER POLYP [None]
  - GAMMA-GLUTAMYLTRANSFERASE INCREASED [None]
  - GASTROINTESTINAL TUBE INSERTION [None]
  - HEPATIC ENCEPHALOPATHY [None]
  - HEPATIC FAILURE [None]
  - LIVER DISORDER [None]
  - MALAISE [None]
  - PROTHROMBIN TIME RATIO INCREASED [None]
  - SUBDURAL HAEMATOMA [None]
  - TREMOR [None]
